FAERS Safety Report 16051415 (Version 1)
Quarter: 2019Q2

REPORT INFORMATION
  Report Type: Spontaneous
  Country: US (occurrence: US)
  Receive Date: 20190307
  Receipt Date: 20190307
  Transmission Date: 20190711
  Serious: Yes (Other)
  Sender: FDA-Public Use
  Company Number: None

PATIENT
  Age: 68 Year
  Sex: Male
  Weight: 94.5 kg

DRUGS (22)
  1. TAMSULOSIN [Concomitant]
     Active Substance: TAMSULOSIN
  2. BUMETANIDE. [Concomitant]
     Active Substance: BUMETANIDE
  3. AMLODIPINE [Concomitant]
     Active Substance: AMLODIPINE BESYLATE
  4. TEMAZEPAM. [Concomitant]
     Active Substance: TEMAZEPAM
  5. GABAPENTIN. [Concomitant]
     Active Substance: GABAPENTIN
  6. ASPIRIN 81 [Concomitant]
     Active Substance: ASPIRIN
  7. LOSARTAN-HCTZ [Concomitant]
     Active Substance: HYDROCHLOROTHIAZIDE\LOSARTAN
  8. METFORMIN [Concomitant]
     Active Substance: METFORMIN HYDROCHLORIDE
  9. POTASSIUM CHLORIDE CRYS ER [Concomitant]
     Active Substance: POTASSIUM CHLORIDE
  10. ATORVASTATIN [Concomitant]
     Active Substance: ATORVASTATIN
  11. ERIVEDGE [Suspect]
     Active Substance: VISMODEGIB
     Indication: BASAL CELL CARCINOMA
     Route: 048
     Dates: start: 20181024
  12. FOLIC ACID. [Concomitant]
     Active Substance: FOLIC ACID
  13. FLUTICASONE PROPIONATE. [Concomitant]
     Active Substance: FLUTICASONE PROPIONATE
  14. METORPOLOL-HCTZ ER [Concomitant]
  15. ALLOPURINOL. [Concomitant]
     Active Substance: ALLOPURINOL
  16. IRON [Concomitant]
     Active Substance: IRON
  17. OMEPRAZOLE. [Concomitant]
     Active Substance: OMEPRAZOLE
  18. CINNAMON. [Concomitant]
     Active Substance: CINNAMON
  19. CENTRUM SILVER [Concomitant]
     Active Substance: MINERALS\VITAMINS
  20. OXYCODONE [Concomitant]
     Active Substance: OXYCODONE
  21. FLUOROURACIL+CALCIPITRIOL [Concomitant]
  22. WARFARIN [Concomitant]
     Active Substance: WARFARIN

REACTIONS (1)
  - Muscle spasms [None]
